FAERS Safety Report 25402321 (Version 1)
Quarter: 2025Q2

REPORT INFORMATION
  Report Type: Spontaneous
  Country: BR (occurrence: BR)
  Receive Date: 20250605
  Receipt Date: 20250605
  Transmission Date: 20250716
  Serious: Yes (Other)
  Sender: NOVARTIS
  Company Number: BR-002147023-NVSC2025BR078234

PATIENT
  Sex: Female
  Weight: 54 kg

DRUGS (8)
  1. KISQALI [Suspect]
     Active Substance: RIBOCICLIB SUCCINATE
     Indication: Invasive lobular breast carcinoma
     Dosage: 3 DOSAGE FORM, QD (21 DAYS, 7 DAYS BREAK)
     Route: 065
     Dates: start: 20241105, end: 20250422
  2. KISQALI [Suspect]
     Active Substance: RIBOCICLIB SUCCINATE
     Dosage: 2 DOSAGE FORM, QD (21 DAYS,7 DAYS BREAK)
     Route: 048
     Dates: start: 20250422
  3. LOSARTAN [Concomitant]
     Active Substance: LOSARTAN
     Indication: Hypertension
     Dosage: 1 DOSAGE FORM, QD
     Route: 065
  4. INDAPAMIDE [Concomitant]
     Active Substance: INDAPAMIDE
     Indication: Hypertension
     Dosage: 1 DOSAGE FORM, QD
     Route: 065
  5. BISOPROLOL [Concomitant]
     Active Substance: BISOPROLOL
     Indication: Hypertension
     Dosage: 1 DOSAGE FORM, QD
     Route: 065
  6. FULVESTRANT [Concomitant]
     Active Substance: FULVESTRANT
     Indication: Invasive breast carcinoma
     Route: 030
     Dates: start: 20241105
  7. DENOSUMAB [Concomitant]
     Active Substance: DENOSUMAB
     Indication: Neoplasm malignant
     Route: 030
     Dates: end: 20250418
  8. DENOSUMAB [Concomitant]
     Active Substance: DENOSUMAB
     Route: 030
     Dates: start: 20250418

REACTIONS (14)
  - Dry skin [Not Recovered/Not Resolved]
  - Decreased appetite [Not Recovered/Not Resolved]
  - Hair texture abnormal [Not Recovered/Not Resolved]
  - Alopecia [Not Recovered/Not Resolved]
  - Madarosis [Not Recovered/Not Resolved]
  - Immune system disorder [Recovering/Resolving]
  - Melanocytic naevus [Not Recovered/Not Resolved]
  - Gastrointestinal disorder [Recovering/Resolving]
  - Leukopenia [Recovering/Resolving]
  - Anaemia [Recovered/Resolved]
  - Haemoglobin abnormal [Recovered/Resolved]
  - Constipation [Recovering/Resolving]
  - Rash macular [Not Recovered/Not Resolved]
  - Expired product administered [Unknown]
